FAERS Safety Report 6256250-5 (Version None)
Quarter: 2009Q3

REPORT INFORMATION
  Report Type: 
  Country: None (occurrence: None)
  Receive Date: 20090706
  Receipt Date: 20090529
  Transmission Date: 20100115
  Serious: No
  Sender: FDA-Public Use
  Company Number: A0784337A

PATIENT
  Age: 11 Year
  Sex: Female

DRUGS (5)
  1. ADVAIR HFA [Suspect]
     Indication: ASTHMA
     Dosage: 1PUFF TWICE PER DAY
     Route: 055
     Dates: start: 20090512, end: 20090513
  2. SINGULAIR [Concomitant]
     Indication: ASTHMA
     Dosage: 5MG PER DAY
     Route: 048
  3. LEVALBUTEROL HCL [Concomitant]
     Indication: ASTHMA
     Dosage: 2PUFF FOUR TIMES PER DAY
     Route: 055
  4. FLUTICASONE PROPIONATE [Concomitant]
     Dosage: 2SPR PER DAY
     Route: 045
  5. LORATADINE [Concomitant]
     Dosage: 5MG PER DAY
     Route: 048

REACTIONS (1)
  - URTICARIA [None]
